FAERS Safety Report 4829928-5 (Version None)
Quarter: 2005Q4

REPORT INFORMATION
  Report Type: 
  Country: None (occurrence: None)
  Receive Date: 20051115
  Receipt Date: 20051103
  Transmission Date: 20060501
  Serious: Yes (Disabling, Other)
  Sender: FDA-Public Use
  Company Number: 2005RR-01078

PATIENT
  Age: 57 Year
  Sex: Male
  Weight: 89 kg

DRUGS (5)
  1. METFORMIN HYDROCHLORIDE [Suspect]
     Dosage: 250 MG, BID, ORAL
     Route: 048
     Dates: start: 20050823, end: 20050909
  2. AMLODIPINE MALEATE [Concomitant]
  3. SIMVASTATIN [Concomitant]
  4. ASPIRIN [Concomitant]
  5. CO-TENIDONE [Concomitant]

REACTIONS (3)
  - PERIORBITAL OEDEMA [None]
  - SWELLING FACE [None]
  - URTICARIA [None]
